FAERS Safety Report 15355808 (Version 1)
Quarter: 2018Q3

REPORT INFORMATION
  Report Type: Spontaneous
  Country: US (occurrence: US)
  Receive Date: 20180906
  Receipt Date: 20180906
  Transmission Date: 20181010
  Serious: Yes (Other)
  Sender: FDA-Public Use
  Company Number: PHEH2018US035803

PATIENT
  Sex: Male

DRUGS (1)
  1. COLESTYRAMINE [Suspect]
     Active Substance: CHOLESTYRAMINE
     Indication: DIABETES MELLITUS
     Dosage: 4 G, UNK (2 SCOOPS DAILY)
     Route: 065

REACTIONS (1)
  - Blood glucose increased [Unknown]
